FAERS Safety Report 15066880 (Version 1)
Quarter: 2018Q2

REPORT INFORMATION
  Report Type: Spontaneous
  Country: CH (occurrence: CH)
  Receive Date: 20180626
  Receipt Date: 20180626
  Transmission Date: 20180711
  Serious: Yes (Other)
  Sender: FDA-Public Use
  Company Number: CH-TEVA-2018-CH-913315

PATIENT
  Sex: Male

DRUGS (1)
  1. COPAXONE [Suspect]
     Active Substance: GLATIRAMER ACETATE
     Route: 065

REACTIONS (7)
  - Multiple sclerosis relapse [Unknown]
  - Urinary retention [Unknown]
  - Mental fatigue [Unknown]
  - Optic neuritis [Unknown]
  - Neurogenic bladder [Unknown]
  - Injection site atrophy [Unknown]
  - Muscle fatigue [Unknown]
